FAERS Safety Report 11863912 (Version 2)
Quarter: 2016Q3

REPORT INFORMATION
  Report Type: Report from Study
  Country: ZA (occurrence: ZA)
  Receive Date: 20151223
  Receipt Date: 20160826
  Transmission Date: 20161109
  Serious: Yes (Other)
  Sender: FDA-Public Use
  Company Number: ZA-JNJFOC-20151217208

PATIENT
  Age: 38 Year
  Sex: Female
  Weight: 49.1 kg

DRUGS (26)
  1. SIRTURO [Suspect]
     Active Substance: BEDAQUILINE FUMARATE
     Indication: TUBERCULOSIS
     Route: 048
     Dates: start: 20160121, end: 20160430
  2. SIRTURO [Suspect]
     Active Substance: BEDAQUILINE FUMARATE
     Indication: TUBERCULOSIS
     Route: 048
     Dates: start: 20151230, end: 20160115
  3. PYRIDOXINE [Concomitant]
     Active Substance: PYRIDOXINE
     Indication: PROPHYLAXIS
     Route: 048
     Dates: start: 20150617, end: 20151211
  4. PANADO [Concomitant]
     Active Substance: ACETAMINOPHEN
     Indication: HEADACHE
     Route: 048
     Dates: start: 20151119, end: 20151211
  5. LINEZOLID. [Suspect]
     Active Substance: LINEZOLID
     Indication: TUBERCULOSIS
     Route: 048
     Dates: start: 20151203, end: 20151211
  6. PANADO [Concomitant]
     Active Substance: ACETAMINOPHEN
     Indication: HEADACHE
     Route: 048
     Dates: start: 20151019, end: 20151211
  7. LINEZOLID. [Suspect]
     Active Substance: LINEZOLID
     Indication: TUBERCULOSIS
     Route: 048
     Dates: start: 20151230, end: 20160115
  8. PRETOMANID [Suspect]
     Active Substance: PRETOMANID
     Indication: TUBERCULOSIS
     Dosage: FOR 7 DAYS
     Route: 048
     Dates: start: 20151230, end: 20160115
  9. BACTRIM [Concomitant]
     Active Substance: SULFAMETHOXAZOLE\TRIMETHOPRIM
     Indication: ANTIFUNGAL PROPHYLAXIS
     Route: 048
     Dates: start: 20150720, end: 20151211
  10. VITAMIN B COMPLEX [Concomitant]
     Active Substance: CYANOCOBALAMIN\DEXPANTHENOL\NIACINAMIDE\PYRIDOXINE HYDROCHLORIDE\RIBOFLAVIN 5^-PHOSPHATE SODIUM\THIAMINE HYDROCHLORIDE\VITAMIN B COMPLEX
     Indication: VITAMIN SUPPLEMENTATION
     Route: 048
     Dates: start: 20150814, end: 20151211
  11. TENOFOVIR [Concomitant]
     Active Substance: TENOFOVIR
     Indication: HIV INFECTION
     Route: 048
     Dates: start: 20151106, end: 20151211
  12. PRETOMANID [Suspect]
     Active Substance: PRETOMANID
     Indication: TUBERCULOSIS
     Route: 048
     Dates: start: 20151008, end: 20151211
  13. PREGAMAL [Concomitant]
     Indication: ANAEMIA
     Route: 048
     Dates: start: 20151016, end: 20151211
  14. PANADO [Concomitant]
     Active Substance: ACETAMINOPHEN
     Indication: EYE PAIN
     Route: 048
     Dates: start: 20151119, end: 20151211
  15. PANADO [Concomitant]
     Active Substance: ACETAMINOPHEN
     Indication: PLEURITIC PAIN
     Route: 048
     Dates: start: 20151019, end: 20151211
  16. LINEZOLID. [Suspect]
     Active Substance: LINEZOLID
     Indication: TUBERCULOSIS
     Route: 048
     Dates: start: 20160121, end: 20160430
  17. LOPINAVIR W/RITONAVIR [Concomitant]
     Active Substance: LOPINAVIR\RITONAVIR
     Indication: HIV INFECTION
     Route: 048
     Dates: start: 20150916, end: 20151211
  18. PANADO [Concomitant]
     Active Substance: ACETAMINOPHEN
     Indication: PLEURITIC PAIN
     Route: 048
     Dates: start: 20151119, end: 20151211
  19. SPERSALLERGY [Concomitant]
     Indication: EYE PAIN
     Dosage: 2 DROPS
     Route: 061
     Dates: start: 20151106, end: 20151211
  20. SIRTURO [Suspect]
     Active Substance: BEDAQUILINE FUMARATE
     Indication: TUBERCULOSIS
     Route: 048
     Dates: start: 20151023, end: 20151211
  21. SIRTURO [Suspect]
     Active Substance: BEDAQUILINE FUMARATE
     Indication: TUBERCULOSIS
     Route: 048
     Dates: start: 20151008, end: 20151022
  22. LAMIVUDINE. [Concomitant]
     Active Substance: LAMIVUDINE
     Indication: HIV INFECTION
     Route: 048
     Dates: start: 20150914, end: 20151211
  23. TRIMETHOPRIM. [Concomitant]
     Active Substance: TRIMETHOPRIM
     Route: 065
  24. PANADO [Concomitant]
     Active Substance: ACETAMINOPHEN
     Indication: EYE PAIN
     Route: 048
     Dates: start: 20151019, end: 20151211
  25. LINEZOLID. [Suspect]
     Active Substance: LINEZOLID
     Indication: TUBERCULOSIS
     Route: 048
     Dates: start: 20151008, end: 20151105
  26. PRETOMANID [Suspect]
     Active Substance: PRETOMANID
     Indication: TUBERCULOSIS
     Route: 048
     Dates: start: 20160121, end: 20160430

REACTIONS (1)
  - Pancreatitis [Recovered/Resolved]

NARRATIVE: CASE EVENT DATE: 20151211
